FAERS Safety Report 24986149 (Version 1)
Quarter: 2025Q1

REPORT INFORMATION
  Report Type: Spontaneous
  Country: US (occurrence: None)
  Receive Date: 20250218
  Receipt Date: 20250218
  Transmission Date: 20250409
  Serious: Yes (Death)
  Sender: FDA-CTU
  Company Number: None

PATIENT
  Sex: Male

DRUGS (1)
  1. EVEROLIMUS [Suspect]
     Active Substance: EVEROLIMUS
     Indication: Immunosuppressant drug therapy
     Dates: start: 20240510, end: 20240710

REACTIONS (3)
  - Hodgkin^s disease [None]
  - Infection [None]
  - Haemoglobin decreased [None]

NARRATIVE: CASE EVENT DATE: 20240510
